FAERS Safety Report 12484277 (Version 1)
Quarter: 2016Q2

REPORT INFORMATION
  Report Type: Spontaneous
  Country: US (occurrence: None)
  Receive Date: 20160620
  Receipt Date: 20160620
  Transmission Date: 20160815
  Serious: Yes (Disabling)
  Sender: FDA-Public Use
  Company Number: None

PATIENT
  Age: 73 Year
  Sex: Male
  Weight: 81.65 kg

DRUGS (3)
  1. NOVOLOG [Suspect]
     Active Substance: INSULIN ASPART
     Indication: DRUG THERAPY
     Dosage: 10 UNITS 3XTIMES SYRINGE 3 TIMES A DAY INJECTION
  2. LEVEMIR [Suspect]
     Active Substance: INSULIN DETEMIR
     Indication: DRUG THERAPY
     Dosage: SYRINGE UNITS AT BEDTIME INJECTION
  3. MULTI VITAMIN [Concomitant]
     Active Substance: VITAMINS

REACTIONS (1)
  - Unevaluable event [None]
